FAERS Safety Report 7248174-1 (Version None)
Quarter: 2011Q1

REPORT INFORMATION
  Report Type: 
  Country: None (occurrence: None)
  Receive Date: 20110127
  Receipt Date: 20110112
  Transmission Date: 20110831
  Serious: Yes (Other)
  Sender: FDA-Public Use
  Company Number: NL-GENENTECH-309131

PATIENT
  Sex: Male

DRUGS (1)
  1. XOLAIR [Suspect]
     Indication: PRODUCT USED FOR UNKNOWN INDICATION

REACTIONS (9)
  - LUNG DISORDER [None]
  - PSYCHOMOTOR HYPERACTIVITY [None]
  - ASTHMA [None]
  - HYPERSENSITIVITY [None]
  - INSOMNIA [None]
  - ASPERGILLOSIS [None]
  - ASTHMA EXERCISE INDUCED [None]
  - FATIGUE [None]
  - UPPER AIRWAY OBSTRUCTION [None]
